FAERS Safety Report 5623088-9 (Version None)
Quarter: 2008Q1

REPORT INFORMATION
  Report Type: 
  Country: None (occurrence: None)
  Receive Date: 20080212
  Receipt Date: 20080208
  Transmission Date: 20080703
  Serious: Yes (Death, Hospitalization)
  Sender: FDA-Public Use
  Company Number: PHEH2007US14101

PATIENT
  Age: 59 Year
  Sex: Female
  Weight: 84.353 kg

DRUGS (13)
  1. ADDERALL 10 [Concomitant]
     Dosage: 20 MG, QD
     Route: 048
     Dates: start: 20060726, end: 20071104
  2. PROVIGIL [Concomitant]
     Dosage: 200 MG, QD
     Route: 048
     Dates: start: 20040915, end: 20071104
  3. DEPAKOTE [Concomitant]
     Dosage: 3 TABLETS AT BEDTIME
     Route: 048
     Dates: start: 20040915, end: 20071104
  4. EFFEXOR [Concomitant]
     Dosage: 3 TABLETS AT BEDTIME
     Dates: start: 20040915, end: 20071104
  5. WELLBUTRIN [Concomitant]
     Dosage: 2 TABLETS DAILY IN THE AM
     Route: 048
     Dates: start: 20040915, end: 20071104
  6. CLOZARIL [Suspect]
     Indication: SCHIZOAFFECTIVE DISORDER
     Dosage: 100 MG, QHS
     Route: 048
     Dates: start: 20070314, end: 20070917
  7. CLOZARIL [Suspect]
     Dosage: 300 MG, QD
     Route: 048
     Dates: start: 20020101
  8. SPIRIVA [Concomitant]
     Dosage: ONCE DAILY
  9. SPIRIVA [Concomitant]
     Dosage: ONCE DAILY
  10. ADVAIR DISKUS 100/50 [Concomitant]
     Dosage: 1 PUFF BID
  11. MUCINEX [Concomitant]
     Dosage: 1 TABLET BID
  12. PRILOSEC [Concomitant]
     Dosage: ONE DAILY
  13. ALBUTEROL [Concomitant]
     Dosage: 2 PUFFS QID

REACTIONS (13)
  - APPENDICECTOMY [None]
  - ASPIRATION PLEURAL CAVITY [None]
  - CHEST PAIN [None]
  - COUGH [None]
  - DYSPNOEA [None]
  - EMPHYSEMA [None]
  - FATIGUE [None]
  - HYPERTENSION [None]
  - HYPOXIA [None]
  - OEDEMA PERIPHERAL [None]
  - PLEURAL EFFUSION [None]
  - PNEUMONIA [None]
  - SPINAL LAMINECTOMY [None]
